FAERS Safety Report 17602457 (Version 2)
Quarter: 2020Q2

REPORT INFORMATION
  Report Type: Spontaneous
  Country: FR (occurrence: FR)
  Receive Date: 20200330
  Receipt Date: 20200402
  Transmission Date: 20200713
  Serious: Yes (Death, Hospitalization)
  Sender: FDA-Public Use
  Company Number: FR-BAXTER-2020BAX006592

PATIENT
  Age: 64 Year
  Sex: Female

DRUGS (16)
  1. PREGABALINE [Concomitant]
     Active Substance: PREGABALIN
     Indication: PRODUCT USED FOR UNKNOWN INDICATION
     Route: 048
     Dates: start: 20191122
  2. PRIMPARAN [Concomitant]
     Indication: PRODUCT USED FOR UNKNOWN INDICATION
     Dosage: NOT COMMUNICATED, 10 MG/2 ML, SOLUTION FOR INJECTION IN VIAL
     Route: 042
     Dates: start: 20191122
  3. FILGRASTIM BACTERIE/ESCHERICHIA COLI [Concomitant]
     Indication: PRODUCT USED FOR UNKNOWN INDICATION
     Route: 042
     Dates: start: 20191122
  4. ZOPHREN [Concomitant]
     Active Substance: ONDANSETRON
     Indication: PRODUCT USED FOR UNKNOWN INDICATION
     Dosage: 4 MG/2 ML SOLUTION FOR INJECTION IN PRE-FILLED SYRINGE , IF NAUSEA AND VOMITING
     Route: 042
     Dates: start: 20191122
  5. INSULIN [Concomitant]
     Active Substance: INSULIN NOS
     Indication: PRODUCT USED FOR UNKNOWN INDICATION
     Route: 065
     Dates: start: 20191122
  6. RITUXIMAB. [Suspect]
     Active Substance: RITUXIMAB
     Indication: BURKITT^S LYMPHOMA
     Dosage: NOT PROVIDED, (MAMMAL/HAMSTER/CHO CELLS)
     Route: 065
     Dates: start: 20191005
  7. METHOTREXATE. [Suspect]
     Active Substance: METHOTREXATE
     Indication: BURKITT^S LYMPHOMA
     Dosage: NOT PROVIDED
     Route: 065
     Dates: start: 20191003
  8. ENDOXAN 1000 MG, POUDRE POUR SOLUTIONINJECTABLE [Suspect]
     Active Substance: CYCLOPHOSPHAMIDE
     Indication: BURKITT^S LYMPHOMA
     Dosage: NOT COMMUNICATED
     Route: 065
     Dates: start: 20191005
  9. DOXIL [Suspect]
     Active Substance: DOXORUBICIN HYDROCHLORIDE
     Indication: BURKITT^S LYMPHOMA
     Dosage: NOT COMMUNICATED
     Route: 065
     Dates: start: 20191005
  10. VINCRISTINE (SULFATE) [Suspect]
     Active Substance: VINCRISTINE SULFATE
     Indication: BURKITT^S LYMPHOMA
     Dosage: NOT COMMUNICATED
     Route: 065
     Dates: start: 20191005
  11. PANTOPRAZOLE [Concomitant]
     Active Substance: PANTOPRAZOLE
     Indication: PRODUCT USED FOR UNKNOWN INDICATION
     Route: 042
     Dates: start: 20191122
  12. ALVITYL [Concomitant]
     Active Substance: VITAMINS
     Indication: PRODUCT USED FOR UNKNOWN INDICATION
     Route: 048
     Dates: start: 20191122
  13. ACICLOVIR [Concomitant]
     Active Substance: ACYCLOVIR
     Indication: PRODUCT USED FOR UNKNOWN INDICATION
     Route: 042
     Dates: start: 20191122
  14. PREDNISONE. [Suspect]
     Active Substance: PREDNISONE
     Indication: BURKITT^S LYMPHOMA
     Dosage: NOT PROVIDED
     Route: 065
     Dates: start: 20191005
  15. MORPHINE [Concomitant]
     Active Substance: MORPHINE
     Indication: PRODUCT USED FOR UNKNOWN INDICATION
     Dosage: IF REQUIRED
     Route: 042
     Dates: start: 20191122
  16. BACTRIM [Concomitant]
     Active Substance: SULFAMETHOXAZOLE\TRIMETHOPRIM
     Indication: PRODUCT USED FOR UNKNOWN INDICATION
     Dosage: SOLUTION FOR INJECTION OR INFUSION
     Route: 042
     Dates: start: 20191122

REACTIONS (4)
  - Burkitt^s lymphoma [Fatal]
  - Septic shock [Fatal]
  - Lung disorder [Fatal]
  - Bone marrow failure [Fatal]

NARRATIVE: CASE EVENT DATE: 20191005
